FAERS Safety Report 9206792 (Version 1)
Quarter: 2013Q1

REPORT INFORMATION
  Report Type: Spontaneous
  Country: US (occurrence: None)
  Receive Date: 20120718
  Receipt Date: 20120718
  Transmission Date: 20140127
  Serious: Yes (Death, Life-Threatening, Hospitalization)
  Sender: FDA-Public Use
  Company Number: 2011SP025155

PATIENT
  Age: 86 Year
  Sex: Female

DRUGS (1)
  1. INTEGRILIN [Suspect]
     Indication: PRODUCT USED FOR UNKNOWN INDICATION
     Dosage: : IV
     Route: 042
     Dates: start: 201105, end: 201105

REACTIONS (4)
  - Cerebral haemorrhage [None]
  - Haematemesis [None]
  - Epistaxis [None]
  - Fall [None]
